FAERS Safety Report 9512377 (Version 1)
Quarter: 2013Q1

REPORT INFORMATION
  Report Type: Spontaneous
  Country: US (occurrence: None)
  Receive Date: 20130305
  Receipt Date: 20130305
  Transmission Date: 20140127
  Serious: Yes (Other)
  Sender: FDA-Public Use
  Company Number: 163-21880-11112990

PATIENT
  Age: 56 Year
  Sex: Female
  Weight: 86.64 kg

DRUGS (18)
  1. HECTOROL (DOXERCALCIFEROL) (CAPSULES) [Concomitant]
  2. MAGNESIUM OXIDE (MAGNESIUM OXIDE) (400 MILLIGRAM, TABLETS) [Concomitant]
  3. NEXIUM (ESOMEPRAZOLE) (40 MILLIGRAM, CAPSULES) [Concomitant]
  4. NORVASC (AMLODIPINE BESILATE) (5 MILLIGRAM, TABLETS) [Concomitant]
  5. RENVELA (SEVELAMER CARBONATE) (800 MILLIGRAM, TABLETS) [Concomitant]
  6. SODIUM BICARBONATE (SODIUM BICARBONATE) (325 MILLIGRAM, TABLETS) [Concomitant]
  7. ALKERAN (MELPHALAN) (UNKNOWN) [Concomitant]
  8. PREDNISONE (PREDNISONE) (20 MILLIGRAM, TABLETS) [Concomitant]
  9. ARANESP (DARBEPOETIN ALFA) (UNKNOWN) [Concomitant]
  10. MELPHALAN (MELPHALAN) (UNKNOWN) [Concomitant]
  11. CALCITROL (CALCITROL) (CAPSULES) [Concomitant]
  12. REVLIMID [Suspect]
     Indication: AMYLOIDOSIS
     Dosage: 10 MG, QOD, PO
     Route: 048
     Dates: start: 20101213
  13. REVLIMID [Suspect]
     Indication: PLASMA CELL MYELOMA
     Dosage: 10 MG, QOD, PO
     Route: 048
     Dates: start: 20101213
  14. DECADRON [Concomitant]
  15. LEVAQUIN (LEVOFLOXACIN) (UNKNOWN) [Concomitant]
  16. Z-PAK (AZITHROMYCIN) (UNKNOWN) [Concomitant]
  17. ACYCLOVIR (ACICLOVIR (400 MILLIGRAM, TABLETS) [Concomitant]
  18. CITRACAL + BONE DENSITY (TABLETS) [Concomitant]

REACTIONS (3)
  - Renal failure chronic [None]
  - Pancytopenia [None]
  - Nasopharyngitis [None]
